FAERS Safety Report 24960876 (Version 1)
Quarter: 2025Q1

REPORT INFORMATION
  Report Type: Spontaneous
  Country: US (occurrence: None)
  Receive Date: 20250211
  Receipt Date: 20250211
  Transmission Date: 20250408
  Serious: Yes (Death)
  Sender: FDA-CTU
  Company Number: None

PATIENT
  Age: 84 Year
  Sex: Male

DRUGS (9)
  1. MYCOPHENOLIC ACID [Suspect]
     Active Substance: MYCOPHENOLIC ACID
     Indication: Renal transplant
     Dosage: FREQUENCY : TWICE A DAY;?
     Route: 048
  2. TACROLIMUS [Suspect]
     Active Substance: TACROLIMUS
     Indication: Renal transplant
     Dosage: FREQUENCY : TWICE A DAY;?
     Route: 048
  3. Allopurinol 100 mg tabs [Concomitant]
  4. Atorvastatin 10 mg tabs [Concomitant]
  5. Lisinopril 10 mg tabs [Concomitant]
  6. mag- oxide 400 mg tabs [Concomitant]
  7. Metoprolol ER 50 MG [Concomitant]
  8. Ranolazine 500 mg ER TABS [Concomitant]
  9. VITAMIN D 3 2000 UNITS [Concomitant]

REACTIONS (1)
  - Death [None]

NARRATIVE: CASE EVENT DATE: 20250209
